FAERS Safety Report 21053130 (Version 2)
Quarter: 2022Q3

REPORT INFORMATION
  Report Type: Spontaneous
  Country: US (occurrence: US)
  Receive Date: 20220707
  Receipt Date: 20220721
  Transmission Date: 20221027
  Serious: No
  Sender: FDA-Public Use
  Company Number: US-PFIZER INC-202200935151

PATIENT
  Age: 88 Year
  Sex: Female
  Weight: 61.23 kg

DRUGS (1)
  1. PAXLOVID [Suspect]
     Active Substance: NIRMATRELVIR\RITONAVIR
     Indication: COVID-19 treatment
     Dosage: [PF-07321332 300 MG]/[RITONAVIR 100 MG]; 2X/DAY
     Dates: start: 20220704, end: 20220706

REACTIONS (10)
  - Myalgia [Unknown]
  - Diarrhoea [Not Recovered/Not Resolved]
  - Hyperhidrosis [Unknown]
  - Pyrexia [Not Recovered/Not Resolved]
  - Insomnia [Unknown]
  - Pain [Recovering/Resolving]
  - Dysgeusia [Not Recovered/Not Resolved]
  - Taste disorder [Unknown]
  - Feeling abnormal [Unknown]
  - COVID-19 [Unknown]

NARRATIVE: CASE EVENT DATE: 20220701
